FAERS Safety Report 4784571-1 (Version None)
Quarter: 2005Q3

REPORT INFORMATION
  Report Type: 
  Country: None (occurrence: None)
  Receive Date: 20050929
  Receipt Date: 20050929
  Transmission Date: 20060218
  Serious: No
  Sender: FDA-Public Use
  Company Number: None

PATIENT
  Age: 62 Year
  Sex: Male
  Weight: 109.7 kg

DRUGS (12)
  1. WARFARIN [Suspect]
     Indication: ATRIAL FIBRILLATION
     Dosage: VARIOUS, VARIOUS, ORAL
     Route: 048
  2. ACARBOSE [Concomitant]
  3. INSULIN NPH HUMAN 100 U/ML INJ NOVOLIN N [Concomitant]
  4. SIMVASTATIN [Concomitant]
  5. SPIRONOLACTONE [Concomitant]
  6. GEMFIBROZIL [Concomitant]
  7. METOPROLOL SUCCINATE [Concomitant]
  8. POTASSIUM CHLORIDE [Concomitant]
  9. INSULIN,GLARGINE,HUMAN [Concomitant]
  10. LANOXIN [Concomitant]
  11. INSULIN REG HUMAN 100 U/ML INJ NOVOLIN R [Concomitant]
  12. IRBESARTAN [Concomitant]

REACTIONS (1)
  - INTERNATIONAL NORMALISED RATIO INCREASED [None]
